FAERS Safety Report 10004618 (Version 1)
Quarter: 2014Q1

REPORT INFORMATION
  Report Type: Spontaneous
  Country: US (occurrence: US)
  Receive Date: 20140312
  Receipt Date: 20140312
  Transmission Date: 20141002
  Serious: No
  Sender: FDA-Public Use
  Company Number: US-009507513-2012SP024292

PATIENT
  Age: 4 Year
  Sex: Male
  Weight: 15.88 kg

DRUGS (1)
  1. CLARITIN CHEWABLE TABLETS [Suspect]
     Indication: SEASONAL ALLERGY
     Dosage: 5 MG, Q12H
     Route: 048
     Dates: start: 20120417

REACTIONS (1)
  - Overdose [Not Recovered/Not Resolved]
